FAERS Safety Report 8846119 (Version 2)
Quarter: 2013Q1

REPORT INFORMATION
  Report Type: Spontaneous
  Country: ES (occurrence: ES)
  Receive Date: 20121017
  Receipt Date: 20130211
  Transmission Date: 20140127
  Serious: Yes (Hospitalization)
  Sender: FDA-Public Use
  Company Number: ES-ELI_LILLY_AND_COMPANY-ES201210002598

PATIENT
  Sex: Female
  Weight: 50 kg

DRUGS (2)
  1. FORSTEO [Suspect]
     Indication: OSTEOPOROSIS
     Dosage: 20 UG, QD
     Route: 058
     Dates: start: 201111
  2. FORSTEO [Suspect]
     Dosage: 20 UG, QD
     Route: 058

REACTIONS (3)
  - Cerebral disorder [Unknown]
  - Weight decreased [Recovering/Resolving]
  - Decreased appetite [Unknown]
